FAERS Safety Report 8409520-6 (Version None)
Quarter: 2012Q2

REPORT INFORMATION
  Report Type: 
  Country: None (occurrence: None)
  Receive Date: 20120323
  Receipt Date: 20110309
  Transmission Date: 20120825
  Serious: Yes (Hospitalization)
  Sender: FDA-Public Use
  Company Number: 163-21880-11010268

PATIENT
  Age: 69 Year
  Sex: Female

DRUGS (3)
  1. REVLIMID [Suspect]
     Indication: MULTIPLE MYELOMA
     Dosage: 15 MG, 14 DAYS ON, 7 DAYS OFF Q21 DAYS, PO,  25 MG, 1 IN 1 D, PO
     Route: 048
     Dates: start: 20100601, end: 20110203
  2. REVLIMID [Suspect]
     Indication: MULTIPLE MYELOMA
     Dosage: 15 MG, 14 DAYS ON, 7 DAYS OFF Q21 DAYS, PO,  25 MG, 1 IN 1 D, PO
     Route: 048
     Dates: start: 20091101, end: 20100101
  3. ASPIRIN [Concomitant]

REACTIONS (5)
  - PULMONARY EMBOLISM [None]
  - RHINORRHOEA [None]
  - PYREXIA [None]
  - NASOPHARYNGITIS [None]
  - NEUROPATHY PERIPHERAL [None]
